FAERS Safety Report 14829692 (Version 1)
Quarter: 2018Q2

REPORT INFORMATION
  Report Type: Spontaneous
  Country: HR (occurrence: HR)
  Receive Date: 20180430
  Receipt Date: 20180430
  Transmission Date: 20180711
  Serious: Yes (Other)
  Sender: FDA-Public Use
  Company Number: HR-PFIZER INC-2018173310

PATIENT
  Sex: Female

DRUGS (3)
  1. ZOLOFT [Suspect]
     Active Substance: SERTRALINE HYDROCHLORIDE
     Dosage: 2500 MG, SINGLE
     Route: 048
     Dates: start: 20171227, end: 20171227
  2. NORMABEL [Suspect]
     Active Substance: DIAZEPAM
     Dosage: 30 DF, UNK (30 TABLETS)
     Route: 048
     Dates: start: 20171227, end: 20171227
  3. BISOBEL [Suspect]
     Active Substance: BISOPROLOL FUMARATE
     Dosage: 40 DF, UNK (40 TABLETS)
     Route: 048
     Dates: start: 20171227, end: 20171227

REACTIONS (2)
  - Suicide attempt [Unknown]
  - Intentional overdose [Unknown]

NARRATIVE: CASE EVENT DATE: 20171227
